FAERS Safety Report 5911560-3 (Version None)
Quarter: 2008Q4

REPORT INFORMATION
  Report Type: 
  Country: None (occurrence: None)
  Receive Date: 20081003
  Receipt Date: 20080923
  Transmission Date: 20090506
  Serious: Yes (Hospitalization)
  Sender: FDA-Public Use
  Company Number: 2008BI017163

PATIENT
  Age: 74 Year
  Sex: Female

DRUGS (3)
  1. AVONEX [Suspect]
     Indication: MULTIPLE SCLEROSIS
     Dosage: 30 UG;QW;IM 30 UG;QW;IM 30 UG;QW;IM
     Dates: start: 20010814, end: 20051230
  2. AVONEX [Suspect]
     Indication: MULTIPLE SCLEROSIS
     Dosage: 30 UG;QW;IM 30 UG;QW;IM 30 UG;QW;IM
     Dates: start: 20060420, end: 20060620
  3. AVONEX [Suspect]
     Indication: MULTIPLE SCLEROSIS
     Dosage: 30 UG;QW;IM 30 UG;QW;IM 30 UG;QW;IM
     Dates: start: 20070307

REACTIONS (4)
  - CHEST PAIN [None]
  - DYSSTASIA [None]
  - FALL [None]
  - HIATUS HERNIA [None]
